FAERS Safety Report 7516238-0 (Version None)
Quarter: 2011Q2

REPORT INFORMATION
  Report Type: 
  Country: None (occurrence: None)
  Receive Date: 20110520
  Receipt Date: 20110511
  Transmission Date: 20111010
  Serious: Yes (Hospitalization)
  Sender: FDA-Public Use
  Company Number: UTC-007062

PATIENT
  Age: 85 Year
  Sex: Female
  Weight: 52.27 kg

DRUGS (6)
  1. DILTIAZEM [Concomitant]
  2. ADCIRCA [Concomitant]
  3. DIGOXIN [Concomitant]
  4. LETAIRIS [Concomitant]
  5. DIURETICS (DIURETICS) [Concomitant]
  6. TYVASO [Suspect]
     Indication: PULMONARY HYPERTENSION
     Dosage: 216 MCG (54 MCG,4 IN 1 D), INHALATION
     Route: 055
     Dates: start: 20100511

REACTIONS (2)
  - HEART RATE INCREASED [None]
  - OXYGEN CONSUMPTION DECREASED [None]
